FAERS Safety Report 8398856-3 (Version None)
Quarter: 2012Q2

REPORT INFORMATION
  Report Type: 
  Country: None (occurrence: None)
  Receive Date: 20120524
  Receipt Date: 20120521
  Transmission Date: 20120825
  Serious: Yes (Life-Threatening, Hospitalization)
  Sender: FDA-Public Use
  Company Number: 2012SP024879

PATIENT
  Sex: Male
  Weight: 83 kg

DRUGS (5)
  1. DEXAMETHASONE [Concomitant]
  2. ALLOPURINOL [Concomitant]
  3. TEMOZOLOMIDE [Suspect]
     Indication: GLIOMA
     Dosage: 300 MG;PO
     Route: 048
     Dates: start: 20111114, end: 20120116
  4. PANTOPRAZOLE [Concomitant]
  5. LEVETIRACETAM [Concomitant]

REACTIONS (1)
  - PULMONARY EMBOLISM [None]
